FAERS Safety Report 23577673 (Version 1)
Quarter: 2024Q1

REPORT INFORMATION
  Report Type: Spontaneous
  Country: US (occurrence: US)
  Receive Date: 20240228
  Receipt Date: 20240228
  Transmission Date: 20240410
  Serious: No
  Sender: FDA-Public Use
  Company Number: US-NOVOPROD-1125554

PATIENT
  Age: 29 Year
  Sex: Female

DRUGS (1)
  1. SAXENDA [Suspect]
     Active Substance: LIRAGLUTIDE
     Indication: Obesity
     Dosage: 2.4 MG
     Route: 058
     Dates: start: 20230706, end: 20230923

REACTIONS (2)
  - Pruritus [Recovered/Resolved]
  - Injection site rash [Unknown]
